FAERS Safety Report 8767376 (Version 2)
Quarter: 2012Q4

REPORT INFORMATION
  Report Type: 
  Country: FR (occurrence: FR)
  Receive Date: 20120904
  Receipt Date: 20120912
  Transmission Date: 20130627
  Serious: Yes (Hospitalization, Disabling)
  Sender: FDA-Public Use
  Company Number: FR-B.I. PHARMACEUTICALS,INC./RIDGEFIELD-2012-FF-01120FF

PATIENT
  Sex: Male

DRUGS (8)
  1. PRADAXA [Suspect]
     Indication: ATRIAL FIBRILLATION
     Dosage: 220 mg
     Route: 048
     Dates: start: 20120523, end: 20120806
  2. DIGOXINE [Concomitant]
  3. CORDARONE [Concomitant]
     Dosage: 200 mg
  4. METFORMINE [Concomitant]
     Dosage: 1700 mg
     Route: 048
  5. COTAREG [Concomitant]
     Dosage: 80 mg
  6. LASILIX [Concomitant]
     Dosage: 20 mg
  7. ANANDRON [Concomitant]
     Dosage: 150 mg
  8. AUGMENTIN [Concomitant]

REACTIONS (6)
  - Renal failure acute [Not Recovered/Not Resolved]
  - Infected skin ulcer [Unknown]
  - Subcutaneous haematoma [Unknown]
  - Anaemia [Unknown]
  - Petechiae [Recovered/Resolved]
  - Purpura [Recovered/Resolved]
